FAERS Safety Report 4622392-0 (Version None)
Quarter: 2005Q1

REPORT INFORMATION
  Report Type: 
  Country: None (occurrence: None)
  Receive Date: 20050325
  Receipt Date: 20050325
  Transmission Date: 20050727
  Serious: No
  Sender: FDA-Public Use
  Company Number: None

PATIENT
  Age: 59 Year
  Sex: Female
  Weight: 77.1115 kg

DRUGS (1)
  1. MINOCYCLINE HCL [Suspect]
     Indication: ROSACEA
     Dosage: 100 MG ORAL BID
     Route: 048
     Dates: start: 20050201

REACTIONS (1)
  - NIGHT SWEATS [None]
